FAERS Safety Report 19514536 (Version 1)
Quarter: 2021Q3

REPORT INFORMATION
  Report Type: Report from Study
  Country: US (occurrence: US)
  Receive Date: 20210709
  Receipt Date: 20210709
  Transmission Date: 20211014
  Serious: Yes (Other)
  Sender: FDA-Public Use
  Company Number: US-SA-2018SA207297

PATIENT
  Age: 53 Year
  Sex: Female

DRUGS (6)
  1. LISINOPRIL. [Concomitant]
     Active Substance: LISINOPRIL
     Indication: BLOOD PRESSURE MEASUREMENT
     Dosage: 28 MG, QD
     Dates: start: 2014
  2. ZYRTEC [Concomitant]
     Active Substance: CETIRIZINE HYDROCHLORIDE
     Indication: HYPERSENSITIVITY
     Dosage: 10 MG, QD
     Dates: start: 2012
  3. DUPILUMAB [Suspect]
     Active Substance: DUPILUMAB
     Indication: DERMATITIS ATOPIC
     Dosage: 600 MG, 1X
     Route: 058
     Dates: start: 20180615, end: 20180615
  4. DUPILUMAB [Suspect]
     Active Substance: DUPILUMAB
     Indication: ECZEMA
     Dosage: 300 MG, QOW
     Route: 058
     Dates: start: 20180629
  5. COVID?19 VACCINE [Concomitant]
  6. ADVAIR HFA [Concomitant]
     Active Substance: FLUTICASONE PROPIONATE\SALMETEROL XINAFOATE
     Indication: ASTHMA
     Dosage: UNK UNK, BID
     Route: 048
     Dates: start: 2010

REACTIONS (10)
  - Ocular hyperaemia [Not Recovered/Not Resolved]
  - Hernia [Not Recovered/Not Resolved]
  - Lichen sclerosus [Not Recovered/Not Resolved]
  - Skin depigmentation [Not Recovered/Not Resolved]
  - Staphylococcal infection [Not Recovered/Not Resolved]
  - Eye irritation [Not Recovered/Not Resolved]
  - Intentional dose omission [Unknown]
  - Wheezing [Recovered/Resolved]
  - Eczema [Unknown]
  - Erythema [Recovered/Resolved]

NARRATIVE: CASE EVENT DATE: 20180720
